FAERS Safety Report 9364721 (Version 1)
Quarter: 2013Q2

REPORT INFORMATION
  Report Type: Other
  Country: GB (occurrence: GB)
  Receive Date: 20130624
  Receipt Date: 20130624
  Transmission Date: 20140414
  Serious: Yes (Other)
  Sender: FDA-Public Use
  Company Number: GB-WATSON-2013-11174

PATIENT
  Age: 78 Year
  Sex: Female

DRUGS (2)
  1. DOXYCYCLINE HYCLATE (UNKNOWN) [Suspect]
     Indication: INFECTION
     Dosage: UNK
     Route: 048
     Dates: start: 201204, end: 2012
  2. RIFADIN /00146901/ [Suspect]
     Indication: INFECTION
     Dosage: UNK
     Route: 048
     Dates: start: 201204, end: 2012

REACTIONS (2)
  - Amnesia [Unknown]
  - Hypoacusis [Unknown]
